FAERS Safety Report 17901506 (Version 1)
Quarter: 2020Q2

REPORT INFORMATION
  Report Type: Spontaneous
  Country: AR (occurrence: AR)
  Receive Date: 20200616
  Receipt Date: 20200616
  Transmission Date: 20200714
  Serious: Yes (Other)
  Sender: FDA-Public Use
  Company Number: AR-PFIZER INC-2020230767

PATIENT
  Age: 82 Year
  Sex: Female

DRUGS (3)
  1. XELJANZ [Suspect]
     Active Substance: TOFACITINIB CITRATE
     Indication: RHEUMATOID ARTHRITIS
     Dosage: 5 MG, 2X/DAY
     Dates: start: 20170412
  2. XELJANZ [Suspect]
     Active Substance: TOFACITINIB CITRATE
     Dosage: 5 MG, 2X/DAY
  3. XELJANZ [Suspect]
     Active Substance: TOFACITINIB CITRATE
     Dosage: 5 MG, 1X/DAY

REACTIONS (10)
  - Respiratory disorder [Unknown]
  - Gait disturbance [Unknown]
  - Arrhythmia [Unknown]
  - Erythema [Unknown]
  - Memory impairment [Unknown]
  - Intentional product misuse [Unknown]
  - Pain in extremity [Unknown]
  - Pruritus [Unknown]
  - Asphyxia [Unknown]
  - Therapeutic product effect incomplete [Unknown]
